FAERS Safety Report 5580293-8 (Version None)
Quarter: 2007Q4

REPORT INFORMATION
  Report Type: 
  Country: None (occurrence: None)
  Receive Date: 20071130
  Receipt Date: 20070714
  Transmission Date: 20080405
  Serious: No
  Sender: FDA-Public Use
  Company Number: US200707003096

PATIENT
  Age: 63 Year
  Sex: Female
  Weight: 100.7 kg

DRUGS (6)
  1. BYETTA [Suspect]
     Indication: TYPE 2 DIABETES MELLITUS
     Dosage: 5 UG, 2/D, SUBCUTANEOUS ; 10 UG, 2/D
     Route: 058
     Dates: start: 20061001
  2. WELLBUTRIN XL [Concomitant]
  3. POTASSIUM CHLORIDE (POTASSIUM CHLORIDE UNKNOWN FORMULATION) [Concomitant]
  4. LASIX [Concomitant]
  5. CINNAMON (CINNAMOMUM VERUM) [Concomitant]
  6. CHROMIUM (CHROMIUM) [Concomitant]

REACTIONS (3)
  - ALOPECIA [None]
  - SINUSITIS [None]
  - STRESS [None]
